FAERS Safety Report 18126487 (Version 1)
Quarter: 2020Q3

REPORT INFORMATION
  Report Type: Report from Study
  Country: DE (occurrence: DE)
  Receive Date: 20200808
  Receipt Date: 20200808
  Transmission Date: 20201103
  Serious: Yes (Death)
  Sender: FDA-Public Use
  Company Number: NVSC2020DE220485

PATIENT
  Age: 43 Year

DRUGS (2)
  1. TISAGENLECLEUCEL. [Suspect]
     Active Substance: TISAGENLECLEUCEL
     Indication: DIFFUSE LARGE B-CELL LYMPHOMA REFRACTORY
     Dosage: (0.1 E8 CAR?POSITIVE VIABLE T?CELLS)
     Route: 042
     Dates: start: 202002, end: 202002
  2. LENALIDOMIDE [Concomitant]
     Active Substance: LENALIDOMIDE
     Indication: APHERESIS
     Dosage: UNK
     Route: 065

REACTIONS (4)
  - Drug ineffective [Fatal]
  - Malignant neoplasm progression [Fatal]
  - Diffuse large B-cell lymphoma refractory [Fatal]
  - Out of specification test results [Unknown]
